FAERS Safety Report 17652308 (Version 1)
Quarter: 2020Q2

REPORT INFORMATION
  Report Type: Spontaneous
  Country: FR (occurrence: FR)
  Receive Date: 20200409
  Receipt Date: 20200409
  Transmission Date: 20200713
  Serious: Yes (Other)
  Sender: FDA-Public Use
  Company Number: FR-MYLANLABS-2020M1036123

PATIENT
  Age: 79 Year
  Sex: Male
  Weight: 70 kg

DRUGS (11)
  1. VANCOMYCIN MYLAN [Suspect]
     Active Substance: VANCOMYCIN
     Indication: ENDOCARDITIS
     Dosage: 3000 MILLIGRAM, QD
     Route: 042
     Dates: start: 20200227
  2. ACTISKENAN [Concomitant]
     Active Substance: MORPHINE SULFATE
     Dosage: UNK
  3. HYDROCORTISONE ROUSSEL             /00028601/ [Concomitant]
     Active Substance: HYDROCORTISONE
     Dosage: UNK
  4. TAREG [Concomitant]
     Active Substance: VALSARTAN
     Dosage: UNK
  5. ATORVASTATINE ARROW [Concomitant]
     Active Substance: ATORVASTATIN
     Dosage: UNK
  6. ACEBUTOLOL ARROW [Concomitant]
     Active Substance: ACEBUTOLOL
     Dosage: UNK
  7. IMIPENEM/CILASTATINE [Suspect]
     Active Substance: CILASTATIN SODIUM\IMIPENEM
     Indication: ENDOCARDITIS
     Dosage: 3 GRAM, QD
     Route: 042
     Dates: start: 20200227
  8. VITAMINE C ARROW [Concomitant]
     Active Substance: ASCORBIC ACID
     Dosage: UNK
  9. MOVICOL [Concomitant]
     Active Substance: POLYETHYLENE GLYCOL 3350\POTASSIUM CHLORIDE\SODIUM BICARBONATE\SODIUM CHLORIDE
     Dosage: UNK
  10. DUROGESIC [Concomitant]
     Active Substance: FENTANYL
     Dosage: UNK
  11. ACIDE FOLIQUE [Concomitant]
     Active Substance: FOLIC ACID
     Dosage: UNK

REACTIONS (2)
  - Haemorrhage [Recovering/Resolving]
  - Haemoptysis [Recovering/Resolving]

NARRATIVE: CASE EVENT DATE: 20200228
